FAERS Safety Report 13293337 (Version 1)
Quarter: 2017Q1

REPORT INFORMATION
  Report Type: Spontaneous
  Country: US (occurrence: US)
  Receive Date: 20170303
  Receipt Date: 20170303
  Transmission Date: 20170428
  Serious: Yes (Other)
  Sender: FDA-Public Use
  Company Number: US-BAUSCH-BL-2017-005161

PATIENT
  Sex: Male
  Weight: 113.5 kg

DRUGS (3)
  1. VISUDYNE [Suspect]
     Active Substance: VERTEPORFIN
     Indication: CHORIORETINOPATHY
     Dosage: AS DIRECTED
     Route: 042
     Dates: start: 20170221, end: 20170221
  2. SENNA [Concomitant]
     Active Substance: SENNA LEAF\SENNOSIDES\SENNOSIDES A AND B
     Indication: PRODUCT USED FOR UNKNOWN INDICATION
     Route: 048
  3. AMLODIPINE [Concomitant]
     Active Substance: AMLODIPINE BESYLATE
     Indication: BLOOD PRESSURE ABNORMAL
     Route: 048

REACTIONS (3)
  - Off label use [Unknown]
  - Chorioretinopathy [Not Recovered/Not Resolved]
  - Condition aggravated [Not Recovered/Not Resolved]

NARRATIVE: CASE EVENT DATE: 20170221
